FAERS Safety Report 15059917 (Version 3)
Quarter: 2018Q4

REPORT INFORMATION
  Report Type: Spontaneous
  Country: US (occurrence: US)
  Receive Date: 20180625
  Receipt Date: 20181127
  Transmission Date: 20190204
  Serious: Yes (Other)
  Sender: FDA-Public Use
  Company Number: US-SA-2018SA162384

PATIENT
  Age: 41 Year
  Sex: Female
  Weight: 78 kg

DRUGS (8)
  1. TAXOTERE [Suspect]
     Active Substance: DOCETAXEL
     Dosage: 125 MG, EVERY TWO WEEKS
     Route: 042
     Dates: start: 20060525, end: 20060525
  2. XELODA [Concomitant]
     Active Substance: CAPECITABINE
     Dosage: STRENGTH: 500 MG 2 DF, BID  2 WEEKS Q 3 WEEKS, # 120, X3UNK
     Route: 048
  3. XELODA [Concomitant]
     Active Substance: CAPECITABINE
     Dosage: 150 MG, BID T(JR 2 WEEKS Q3 WEEK, #60, X3
     Route: 048
  4. ANZEMET [Concomitant]
     Active Substance: DOLASETRON MESYLATE
     Dosage: 100 MG
     Route: 042
  5. ALOXI [Concomitant]
     Active Substance: PALONOSETRON HYDROCHLORIDE
     Dosage: 0.25 MG, UNK
     Route: 042
  6. DECADRON [DEXAMETHASONE] [Concomitant]
     Dosage: 10 MG, UNK
     Route: 065
  7. TAXOTERE [Suspect]
     Active Substance: DOCETAXEL
     Indication: BREAST CANCER
     Dosage: 125 MG EVERY TWO WEEKS
     Route: 042
     Dates: start: 20060406, end: 20060406
  8. 5-FLUOROURACIL [FLUOROURACIL] [Concomitant]
     Active Substance: FLUOROURACIL
     Dosage: 720 MG, UNK
     Route: 042

REACTIONS (2)
  - Alopecia [Not Recovered/Not Resolved]
  - Emotional distress [Unknown]
